FAERS Safety Report 14648090 (Version 2)
Quarter: 2020Q3

REPORT INFORMATION
  Report Type: Report from Study
  Country: GB (occurrence: GB)
  Receive Date: 20180316
  Receipt Date: 20180425
  Transmission Date: 20201105
  Serious: Yes (Hospitalization)
  Sender: FDA-Public Use
  Company Number: GB-JNJFOC-20180227562

PATIENT
  Age: 67 Year
  Sex: Male
  Weight: 88.9 kg

DRUGS (7)
  1. PHOSPHATE SANDOZ [Concomitant]
     Active Substance: SODIUM PHOSPHATE, MONOBASIC, ANHYDROUS
     Indication: MINERAL SUPPLEMENTATION
     Dosage: START DATE: APPROXIMATELY 6 MONTHS DOSAGE: I TABLET
     Route: 048
  2. CALCICHEW [Concomitant]
     Active Substance: CALCIUM CARBONATE
     Indication: MINERAL SUPPLEMENTATION
     Dosage: START DATE: APPROXIMATELY 1 YEAR
     Route: 048
  3. IBRUTINIB [Suspect]
     Active Substance: IBRUTINIB
     Indication: CHRONIC LYMPHOCYTIC LEUKAEMIA
     Dosage: START PERIOD: 1791 DAYS
     Route: 048
     Dates: start: 20130327, end: 20180218
  4. SEPTRIN [Concomitant]
     Active Substance: SULFAMETHOXAZOLE\TRIMETHOPRIM
     Indication: ANTIBIOTIC THERAPY
     Dosage: MON,WED,FRISTART DATE: APPROXIMATELY 5 YEARS
     Route: 048
  5. ACICLOVIR [Concomitant]
     Active Substance: ACYCLOVIR
     Indication: ANTIVIRAL PROPHYLAXIS
     Dosage: START DATE: APPROXIMATELY 4 YEARS
     Route: 048
  6. IBRUTINIB [Suspect]
     Active Substance: IBRUTINIB
     Indication: LYMPHOCYTIC LYMPHOMA
     Dosage: START PERIOD: 1791 DAYS
     Route: 048
     Dates: start: 20130327, end: 20180218
  7. OMEPRAZOLE. [Concomitant]
     Active Substance: OMEPRAZOLE
     Indication: GASTROINTESTINAL DISORDER THERAPY
     Dosage: START DATE: APPROXIMATELY 2 YEARS
     Route: 048

REACTIONS (1)
  - Ureterolithiasis [Recovered/Resolved]

NARRATIVE: CASE EVENT DATE: 20180219
